FAERS Safety Report 8348101-X (Version None)
Quarter: 2012Q2

REPORT INFORMATION
  Report Type: 
  Country: None (occurrence: None)
  Receive Date: 20120509
  Receipt Date: 20120503
  Transmission Date: 20120825
  Serious: Yes (Other)
  Sender: FDA-Public Use
  Company Number: PHEH2012US009500

PATIENT
  Age: 68 Year
  Sex: Female

DRUGS (1)
  1. DIOVAN HCT [Suspect]
     Dosage: UNK UKN, QD

REACTIONS (3)
  - MYOCARDIAL INFARCTION [None]
  - HYPERTENSION [None]
  - BLOOD CHOLESTEROL INCREASED [None]
